FAERS Safety Report 6244772-2 (Version None)
Quarter: 2009Q2

REPORT INFORMATION
  Report Type: 
  Country: None (occurrence: None)
  Receive Date: 20090625
  Receipt Date: 20090615
  Transmission Date: 20091009
  Serious: Yes (Hospitalization)
  Sender: FDA-Public Use
  Company Number: PL-MEDIMMUNE-MEDI-0008416

PATIENT
  Sex: Male
  Weight: 7.3 kg

DRUGS (2)
  1. SYNAGIS [Suspect]
     Indication: BRONCHOPULMONARY DYSPLASIA
     Route: 030
     Dates: start: 20090227, end: 20090227
  2. SYNAGIS [Suspect]
     Route: 030
     Dates: start: 20090326

REACTIONS (2)
  - BRONCHITIS [None]
  - NERVOUSNESS [None]
